FAERS Safety Report 8988444 (Version 1)
Quarter: 2012Q4

REPORT INFORMATION
  Report Type: Spontaneous
  Country: US (occurrence: None)
  Receive Date: 20121221
  Receipt Date: 20121221
  Transmission Date: 20130627
  Serious: No
  Sender: FDA-Public Use
  Company Number: None

PATIENT
  Age: 66 Year
  Sex: Male
  Weight: 55.5 kg

DRUGS (1)
  1. ENOXAPARIN [Suspect]
     Indication: PULMONARY EMBOLISM
     Dosage: 60 MG BID SQ
     Route: 058
     Dates: start: 20121023, end: 20121026

REACTIONS (5)
  - Gastric haemorrhage [None]
  - Duodenal ulcer [None]
  - Vomiting [None]
  - Faeces discoloured [None]
  - Haemoglobin decreased [None]
